FAERS Safety Report 19404312 (Version 1)
Quarter: 2021Q2

REPORT INFORMATION
  Report Type: Spontaneous
  Country: US (occurrence: US)
  Receive Date: 20210611
  Receipt Date: 20210611
  Transmission Date: 20210717
  Serious: No
  Sender: FDA-Public Use
  Company Number: None

PATIENT
  Age: 27 Year
  Sex: Female

DRUGS (1)
  1. COSENTYX [Suspect]
     Active Substance: SECUKINUMAB
     Indication: PSORIATIC ARTHROPATHY
     Dosage: ?          OTHER FREQUENCY:N/A;?
     Route: 058
     Dates: start: 202003

REACTIONS (4)
  - Panic attack [None]
  - Abdominal pain [None]
  - Therapy interrupted [None]
  - Cough [None]

NARRATIVE: CASE EVENT DATE: 20210503
